FAERS Safety Report 6912161-0 (Version None)
Quarter: 2010Q3

REPORT INFORMATION
  Report Type: 
  Country: None (occurrence: None)
  Receive Date: 20100806
  Receipt Date: 20071226
  Transmission Date: 20110219
  Serious: No
  Sender: FDA-Public Use
  Company Number: US-PFIZER INC-2007088645

PATIENT
  Sex: Female

DRUGS (1)
  1. CYTOTEC [Suspect]
     Indication: POSTPARTUM HAEMORRHAGE
     Dosage: 1 EVERY 2 HOURS
     Route: 048
     Dates: start: 20071012, end: 20071012

REACTIONS (2)
  - CHILLS [None]
  - PYREXIA [None]
